FAERS Safety Report 22265309 (Version 1)
Quarter: 2023Q2

REPORT INFORMATION
  Report Type: Report from Study
  Country: US (occurrence: US)
  Receive Date: 20230428
  Receipt Date: 20230428
  Transmission Date: 20230722
  Serious: No
  Sender: FDA-Public Use
  Company Number: US-002147023-NVSC2023US094465

PATIENT
  Sex: Female

DRUGS (8)
  1. DULOXETINE [Suspect]
     Active Substance: DULOXETINE
     Indication: Psoriasis
     Dosage: 60 MG (CAPSULE) (DELAYED RELEASED)
     Route: 065
  2. ATORVASTATIN [Suspect]
     Active Substance: ATORVASTATIN
     Indication: Psoriasis
     Dosage: 10 MG
     Route: 048
  3. PANTOPRAZOLE [Suspect]
     Active Substance: PANTOPRAZOLE
     Indication: Psoriasis
     Dosage: 40 MG (DELAYED RELEASE)
     Route: 048
  4. LEVOTHYROXINE [Suspect]
     Active Substance: LEVOTHYROXINE
     Indication: Psoriasis
     Dosage: 75 UG
     Route: 048
  5. CARVEDILOL [Suspect]
     Active Substance: CARVEDILOL
     Indication: Psoriasis
     Dosage: 6.25 MG
     Route: 048
  6. TRAZODONE [Suspect]
     Active Substance: TRAZODONE HYDROCHLORIDE
     Indication: Psoriasis
     Dosage: 50 MG
     Route: 048
  7. FOLIC ACID [Suspect]
     Active Substance: FOLIC ACID
     Indication: Psoriasis
     Dosage: 1 MG
     Route: 048
  8. MELOXICAM [Suspect]
     Active Substance: MELOXICAM
     Indication: Psoriasis
     Dosage: 7.5 MG
     Route: 048

REACTIONS (4)
  - Papule [Unknown]
  - Erythema [Unknown]
  - Hyperkeratosis [Unknown]
  - Drug ineffective [Unknown]
